FAERS Safety Report 7334027-7 (Version None)
Quarter: 2011Q1

REPORT INFORMATION
  Report Type: 
  Country: None (occurrence: None)
  Receive Date: 20110307
  Receipt Date: 20110221
  Transmission Date: 20110831
  Serious: Yes (Death)
  Sender: FDA-Public Use
  Company Number: JP-CELGENEUS-087-21880-11022501

PATIENT
  Sex: Female

DRUGS (4)
  1. REVLIMID [Suspect]
     Dosage: 15 MILLIGRAM
     Route: 048
     Dates: start: 20110129, end: 20110210
  2. REVLIMID [Suspect]
     Indication: MYELOMA RECURRENCE
     Dosage: 25 MILLIGRAM
     Route: 048
     Dates: start: 20110121, end: 20110128
  3. DECADRON [Concomitant]
     Indication: MYELOMA RECURRENCE
     Dosage: 16.5 MILLIGRAM
     Route: 041
     Dates: start: 20110121, end: 20110124
  4. DUROTEP [Concomitant]
     Indication: CANCER PAIN
     Dosage: 8.4 MILLIGRAM
     Route: 061
     Dates: start: 20110121, end: 20110213

REACTIONS (4)
  - HYPOAESTHESIA [None]
  - FACE OEDEMA [None]
  - RENAL FAILURE [None]
  - SEPTIC SHOCK [None]
